FAERS Safety Report 7297749-2 (Version None)
Quarter: 2011Q1

REPORT INFORMATION
  Report Type: 
  Country: None (occurrence: None)
  Receive Date: 20110214
  Receipt Date: 20110214
  Transmission Date: 20110831
  Serious: Yes (Life-Threatening)
  Sender: FDA-Public Use
  Company Number: None

PATIENT
  Sex: Male
  Weight: 99.7913 kg

DRUGS (1)
  1. LISINOPRIL [Suspect]
     Indication: HYPERTENSION
     Dosage: 10 MG 1 PER DAY PO
     Route: 048
     Dates: start: 20100120, end: 20110116

REACTIONS (4)
  - ANGIOEDEMA [None]
  - ASPHYXIA [None]
  - PHARYNGEAL OEDEMA [None]
  - PNEUMONIA [None]
